FAERS Safety Report 5041794-4 (Version None)
Quarter: 2006Q2

REPORT INFORMATION
  Report Type: 
  Country: None (occurrence: None)
  Receive Date: 20060630
  Receipt Date: 20060622
  Transmission Date: 20061013
  Serious: Yes (Other)
  Sender: FDA-Public Use
  Company Number: 226622

PATIENT
  Age: 11 Year
  Sex: Male
  Weight: 33.8 kg

DRUGS (1)
  1. NUTROPIN AQ [Suspect]
     Indication: CENTRAL NERVOUS SYSTEM NEOPLASM
     Dosage: 1.3 MG, 7/WEEK, SUBCUTANEOUS
     Route: 058
     Dates: start: 20011217

REACTIONS (2)
  - MEDULLOBLASTOMA [None]
  - NEOPLASM RECURRENCE [None]
